FAERS Safety Report 11057949 (Version 1)
Quarter: 2015Q2

REPORT INFORMATION
  Report Type: Spontaneous
  Country: US (occurrence: None)
  Receive Date: 20150421
  Receipt Date: 20150421
  Transmission Date: 20150821
  Serious: Yes (Death)
  Sender: FDA-Public Use
  Company Number: None

PATIENT
  Age: 67 Year
  Sex: Male
  Weight: 85.73 kg

DRUGS (6)
  1. PROLEUKIN [Suspect]
     Active Substance: ALDESLEUKIN
     Indication: METASTATIC RENAL CELL CARCINOMA
     Dosage: INTERLEUKIN, 600 XIU/KG, Q 8 HRS, IV
     Route: 042
     Dates: start: 20150323, end: 20150326
  2. VOTRIENT [Concomitant]
     Active Substance: PAZOPANIB HYDROCHLORIDE
  3. SUTENT [Concomitant]
     Active Substance: SUNITINIB MALATE
  4. TORISEL [Concomitant]
     Active Substance: TEMSIROLIMUS
  5. AFINITOR [Concomitant]
     Active Substance: EVEROLIMUS
  6. INLYTA [Concomitant]
     Active Substance: AXITINIB

REACTIONS (5)
  - Generalised oedema [None]
  - Acute kidney injury [None]
  - Acute respiratory failure [None]
  - Confusional state [None]
  - Capillary leak syndrome [None]

NARRATIVE: CASE EVENT DATE: 20150409
